FAERS Safety Report 8349102-8 (Version None)
Quarter: 2012Q2

REPORT INFORMATION
  Report Type: 
  Country: None (occurrence: None)
  Receive Date: 20120508
  Receipt Date: 20120423
  Transmission Date: 20120825
  Serious: Yes (Hospitalization)
  Sender: FDA-Public Use
  Company Number: JP-2012-14972

PATIENT
  Age: 85 Year
  Sex: Male
  Weight: 60 kg

DRUGS (26)
  1. BROWN MIXTURE (ANTIMONY POTASSIUM TARTRATE, GLYCEROL, GLYCYRRHIZA GLAB [Concomitant]
  2. PLETAL [Suspect]
     Indication: INTERMITTENT CLAUDICATION
     Dosage: ORAL
     Route: 048
     Dates: start: 20110721
  3. ACETYLSALICYLIC ACID SRT [Concomitant]
  4. COMBIVENT [Concomitant]
  5. ISOBIDE (ISOSORBIDE) [Concomitant]
  6. DIOVAN [Concomitant]
  7. MAGNESIUM OXIDE (MAGNESIUM OXIDE) [Concomitant]
  8. BERODUAL (FENOTEROL HYDROBROMIDE, IPRATROPIUM BROMIDE) [Concomitant]
  9. COMPESOLON (PREDNISOLONE) [Concomitant]
  10. NS (NACL) [Concomitant]
  11. TOZACIN (PIPERACILLIN SODIUM) [Concomitant]
  12. VOREN-G (DICLOFENAC NA) [Concomitant]
  13. FLUTAFIN (ACETYLCYSTEINE) [Concomitant]
  14. NORVASC [Concomitant]
  15. FUROSEMIDE [Concomitant]
  16. UNASYN (AMPICILLIN SODIUM, SULBACTAM SODIUM) [Concomitant]
  17. CURAM (AMOXICILLIN TRIHYDRATE, CLAVULANATE POTASSIUM) [Concomitant]
  18. SOLU-MEDROL [Concomitant]
  19. FLUVIRIN (INFULENZA VACCINE INACTIVATED) [Concomitant]
  20. FUCOLE NOSPAN (DEXTROMETHROPHAN) [Concomitant]
  21. MUBROXOL (AMBROXOL HYDROCHLORIDE) [Concomitant]
  22. NOSMA (THEOPHYLLINE) [Concomitant]
  23. STIN (ACETYLSALICYLIC ACID, GLYCINE) [Concomitant]
  24. HALDOL [Concomitant]
  25. NOVOLOG [Concomitant]
  26. SENNAPUR (SENNOSIDE A B CALCIUM) [Concomitant]

REACTIONS (2)
  - CONDITION AGGRAVATED [None]
  - CHRONIC OBSTRUCTIVE PULMONARY DISEASE [None]
